FAERS Safety Report 11037762 (Version 1)
Quarter: 2015Q2

REPORT INFORMATION
  Report Type: Spontaneous
  Country: KP (occurrence: KP)
  Receive Date: 20150416
  Receipt Date: 20150416
  Transmission Date: 20150821
  Serious: Yes (Death, Other)
  Sender: FDA-Public Use
  Company Number: KP-CIPLA LTD.-2015KP02838

PATIENT

DRUGS (4)
  1. GEMCITABINE [Suspect]
     Active Substance: GEMCITABINE\GEMCITABINE HYDROCHLORIDE
     Indication: BILE DUCT CANCER
  2. LEUCOVORIN [Suspect]
     Active Substance: LEUCOVORIN
     Indication: BILE DUCT CANCER
     Dosage: 30 MG (DAYS 1, 2) EVERY 2 WEEKS
  3. OXALIPLATIN. [Suspect]
     Active Substance: OXALIPLATIN
     Indication: BILE DUCT CANCER
     Dosage: EVERY 2 WEEKS85 MG/M2 (DAY 1)
  4. 5-FLUOROURACIL [Suspect]
     Active Substance: FLUOROURACIL
     Indication: BILE DUCT CANCER
     Dosage: 1,500 MG/M2 (DAYS 1, 2) EVERY 2 WEEKS

REACTIONS (2)
  - Drug ineffective [Unknown]
  - Biliary tract infection [Fatal]
